FAERS Safety Report 7297000-3 (Version None)
Quarter: 2011Q1

REPORT INFORMATION
  Report Type: 
  Country: None (occurrence: None)
  Receive Date: 20110202
  Receipt Date: 20110120
  Transmission Date: 20110831
  Serious: Yes (Other)
  Sender: FDA-Public Use
  Company Number: 012411

PATIENT
  Age: 2 Year
  Sex: Male

DRUGS (5)
  1. TACROLIMUS [Concomitant]
  2. ATG (ANTILYMPHOCYTE IMMUNOGLOBULIN (HORSE)) [Concomitant]
  3. CYCLOPHIOSPHAMIDE (CYCLOPHOSPHAMIDE) [Concomitant]
  4. METHOTREXATE SODIUM [Concomitant]
  5. BUSULFAN [Suspect]
     Indication: STEM CELL TRANSPLANT
     Dosage: ORAL
     Route: 048

REACTIONS (2)
  - NAUSEA [None]
  - INAPPROPRIATE ANTIDIURETIC HORMONE SECRETION [None]
